FAERS Safety Report 6087530-4 (Version None)
Quarter: 2009Q1

REPORT INFORMATION
  Report Type: 
  Country: None (occurrence: None)
  Receive Date: 20090218
  Receipt Date: 20090218
  Transmission Date: 20090719
  Serious: Yes (Other)
  Sender: FDA-Public Use
  Company Number: None

PATIENT
  Age: 68 Year
  Sex: Male
  Weight: 72.5755 kg

DRUGS (2)
  1. FLUOROURACIL [Suspect]
     Indication: ACTINIC KERATOSIS
     Dosage: APPLY SMALL AMOUNTS TO FACE TWICE DAILY
     Dates: start: 20090211, end: 20090214
  2. FLUOROURACIL [Suspect]

REACTIONS (3)
  - ABDOMINAL PAIN [None]
  - BLOOD URINE PRESENT [None]
  - HAEMATOCHEZIA [None]
